FAERS Safety Report 7933087 (Version 2)
Quarter: 2013Q4

REPORT INFORMATION
  Report Type: Spontaneous
  Country: US (occurrence: US)
  Receive Date: 20110506
  Receipt Date: 20131210
  Transmission Date: 20140711
  Serious: Yes (Hospitalization, Other)
  Sender: FDA-Public Use
  Company Number: US-BAYER-2011-037866

PATIENT
  Sex: Female
  Weight: 81.63 kg

DRUGS (8)
  1. YAZ [Suspect]
     Indication: PRODUCT USED FOR UNKNOWN INDICATION
     Dosage: UNK
  2. YASMIN [Suspect]
     Indication: PRODUCT USED FOR UNKNOWN INDICATION
     Dosage: UNK
  3. OCELLA [Suspect]
     Indication: PRODUCT USED FOR UNKNOWN INDICATION
  4. CLENIA [Concomitant]
     Dosage: UNK
  5. DORYX [Concomitant]
     Dosage: 150 MG, UNK
  6. MINOCYCLINE HCL [Concomitant]
     Dosage: 100 MG, UNK
  7. LISINOPRIL [Concomitant]
     Dosage: 10 MG, UNK
  8. METFORMIN HCL [Concomitant]
     Dosage: 500 MG, UNK

REACTIONS (8)
  - Biliary dyskinesia [None]
  - Cholecystitis chronic [None]
  - Organ failure [Unknown]
  - Cholecystectomy [Unknown]
  - Internal injury [None]
  - Pain [Unknown]
  - Anxiety [Unknown]
  - Anhedonia [Unknown]
